FAERS Safety Report 9960127 (Version 2)
Quarter: 2014Q1

REPORT INFORMATION
  Report Type: Report from Study
  Country: US (occurrence: US)
  Receive Date: 20140305
  Receipt Date: 20140305
  Transmission Date: 20141002
  Serious: No
  Sender: FDA-Public Use
  Company Number: US-ABBVIE-13P-163-1064289-00

PATIENT
  Age: 45 Year
  Sex: Male

DRUGS (9)
  1. HUMIRA [Suspect]
     Indication: CROHN^S DISEASE
     Dates: start: 201303
  2. HUMIRA [Suspect]
     Dates: start: 201303
  3. HUMIRA [Suspect]
     Dates: start: 201303
  4. PREDNISONE [Concomitant]
     Indication: PRODUCT USED FOR UNKNOWN INDICATION
     Dosage: WEANING
  5. PREDNISONE [Concomitant]
     Dosage: WEANING
  6. PREDNISONE [Concomitant]
     Dosage: PRE-HUMIRA DOSE
  7. 2 ASTHMA MEDICATIONS [Concomitant]
     Indication: ASTHMA
  8. ALLERGY MEDICATION [Concomitant]
     Indication: HYPERSENSITIVITY
  9. ALBUTEROL [Concomitant]
     Indication: ASTHMA

REACTIONS (5)
  - Frequent bowel movements [Not Recovered/Not Resolved]
  - Urticaria [Not Recovered/Not Resolved]
  - Gastrooesophageal reflux disease [Not Recovered/Not Resolved]
  - Abdominal pain lower [Not Recovered/Not Resolved]
  - Abdominal pain [Not Recovered/Not Resolved]
